FAERS Safety Report 4874091-8 (Version None)
Quarter: 2006Q1

REPORT INFORMATION
  Report Type: 
  Country: None (occurrence: None)
  Receive Date: 20060104
  Receipt Date: 20051229
  Transmission Date: 20060701
  Serious: Yes (Other)
  Sender: FDA-Public Use
  Company Number: 2005173078

PATIENT
  Sex: Male

DRUGS (1)
  1. NATURAL CITRUS LISTERINE (MENTHOL, METHYL SALICYLATE, EUCALYPTOL, THYM [Suspect]
     Dosage: 3 1/2 BOTTLES, FREQUENCY, ORAL
     Route: 048

REACTIONS (2)
  - FEELING DRUNK [None]
  - INTENTIONAL DRUG MISUSE [None]
